FAERS Safety Report 6406573-1 (Version None)
Quarter: 2009Q4

REPORT INFORMATION
  Report Type: 
  Country: None (occurrence: None)
  Receive Date: 20091013
  Receipt Date: 20091007
  Transmission Date: 20100525
  Serious: Yes (Hospitalization)
  Sender: FDA-Public Use
  Company Number: 09US001209

PATIENT
  Age: 66 Year
  Sex: Female
  Weight: 44.9 kg

DRUGS (8)
  1. VALPROIC ACID [Suspect]
     Indication: ABNORMAL BEHAVIOUR
     Dosage: 375 MG, BID, ORAL
     Route: 048
  2. CITALOPRAM HYDROBROMIDE [Concomitant]
  3. SIMVASTATIN [Concomitant]
  4. VITAMIN D [Concomitant]
  5. CALCIUM CARBONATE [Concomitant]
  6. DOCUSATE (DOCUSATE) [Concomitant]
  7. RISPERIDONE [Concomitant]
  8. MULTIVITAMINS (ASCORBIC ACID, ERGOCALCIFEROL, FOLIC ACID, NICOTINAMIDE [Concomitant]

REACTIONS (12)
  - ABNORMAL BEHAVIOUR [None]
  - ACTIVITIES OF DAILY LIVING IMPAIRED [None]
  - AGITATION [None]
  - ASPARTATE AMINOTRANSFERASE DECREASED [None]
  - CRYING [None]
  - DISORIENTATION [None]
  - EYE MOVEMENT DISORDER [None]
  - HALLUCINATION [None]
  - HYPERTONIA [None]
  - HYPOTENSION [None]
  - MYOCLONUS [None]
  - RESTLESSNESS [None]
